FAERS Safety Report 10184761 (Version 2)
Quarter: 2014Q2

REPORT INFORMATION
  Report Type: Spontaneous
  Country: NL (occurrence: NL)
  Receive Date: 20140521
  Receipt Date: 20140521
  Transmission Date: 20141212
  Serious: Yes (Hospitalization)
  Sender: FDA-Public Use
  Company Number: PHHY2014NL055312

PATIENT
  Age: 76 Year
  Sex: Female

DRUGS (2)
  1. TOBI [Suspect]
     Indication: PSEUDOMONAS INFECTION
     Dosage: 300 MG, TWICE A DAY
     Route: 055
  2. DIURETICS [Concomitant]
     Dosage: UNK

REACTIONS (16)
  - Choking sensation [Unknown]
  - Musculoskeletal stiffness [Unknown]
  - Crying [Unknown]
  - Fear [Unknown]
  - Nasal congestion [Unknown]
  - Dysstasia [Unknown]
  - Eating disorder [Unknown]
  - Hyperventilation [Unknown]
  - Feeling abnormal [Unknown]
  - Dyspnoea [Unknown]
  - Pulmonary function test decreased [Unknown]
  - Cough [Unknown]
  - Myalgia [Unknown]
  - Malaise [Unknown]
  - Dysgeusia [Unknown]
  - Drug ineffective [Unknown]
